FAERS Safety Report 4672836-3 (Version None)
Quarter: 2005Q2

REPORT INFORMATION
  Report Type: 
  Country: None (occurrence: None)
  Receive Date: 20050524
  Receipt Date: 20050511
  Transmission Date: 20051028
  Serious: Yes (Other)
  Sender: FDA-Public Use
  Company Number: PHEH2005US05430

PATIENT
  Age: 60 Year
  Sex: Female

DRUGS (3)
  1. ZOMETA [Suspect]
     Indication: MULTIPLE MYELOMA
     Dosage: 4 MG, QMO
     Dates: start: 19990601, end: 20040701
  2. CHEMOTHERAPEUTICS,OTHER [Concomitant]
     Dates: start: 19990301
  3. PAMIDRONATE DISODIUM [Concomitant]
     Dates: start: 19990401

REACTIONS (4)
  - BONE DEBRIDEMENT [None]
  - GINGIVITIS [None]
  - TOOTH EXTRACTION [None]
  - TOOTH INFECTION [None]
